FAERS Safety Report 13642298 (Version 2)
Quarter: 2017Q3

REPORT INFORMATION
  Report Type: Spontaneous
  Country: JP (occurrence: JP)
  Receive Date: 20170612
  Receipt Date: 20170804
  Transmission Date: 20171127
  Serious: Yes (Hospitalization, Other)
  Sender: FDA-Public Use
  Company Number: JP-BAYER-2017-106045

PATIENT
  Age: 26 Year
  Sex: Female
  Weight: 49.2 kg

DRUGS (2)
  1. BAYASPIRIN 100 MG [Suspect]
     Active Substance: ASPIRIN
     Indication: THROMBOSIS PROPHYLAXIS
     Dosage: 100 MG, QD
     Route: 048
     Dates: start: 1993
  2. HEPARIN [Interacting]
     Active Substance: HEPARIN SODIUM
     Indication: THROMBOSIS PROPHYLAXIS
     Dosage: DAILY DOSE 10000 U
     Route: 058

REACTIONS (11)
  - Subchorionic haematoma [Recovered/Resolved]
  - Drug administration error [None]
  - Product use in unapproved indication [None]
  - Premature baby [Recovered/Resolved]
  - Threatened labour [Recovered/Resolved]
  - Caesarean section [Recovered/Resolved]
  - Uterine haemorrhage [Recovered/Resolved]
  - Maternal exposure during pregnancy [Recovered/Resolved with Sequelae]
  - Labelled drug-drug interaction medication error [None]
  - Foetal growth restriction [None]
  - Off label use [None]
